FAERS Safety Report 8784663 (Version 1)
Quarter: 2012Q4

REPORT INFORMATION
  Report Type: Spontaneous
  Country: US (occurrence: None)
  Receive Date: 20120830
  Receipt Date: 20120830
  Transmission Date: 20130627
  Serious: Yes (Disabling)
  Sender: FDA-Public Use
  Company Number: 12001905

PATIENT
  Age: 81 Year
  Sex: Female

DRUGS (11)
  1. OXYBUTYNIN CHLORIDE [Suspect]
     Dosage: 10 mg, unknown
  2. LYRICA [Suspect]
     Dosage: 50 mg, bid
     Dates: start: 20120726, end: 20120728
  3. LYRICA [Suspect]
     Dosage: 50 mg, bid
     Dates: start: 20120726, end: 20120728
  4. LISINOPRIL [Suspect]
  5. SYNTHROID (LEVOTHYROXINE SODIUM) [Suspect]
     Dosage: 50 mcg, qd
  6. XANAX [Suspect]
  7. FISH OIL [Suspect]
  8. CENTRUM SILVER [Suspect]
  9. LOVASTATIN [Suspect]
     Dosage: 20 mg, tid
  10. BABY ASPIRIN [Suspect]
  11. RIVASTIG [Suspect]
     Indication: DEMENTIA

REACTIONS (20)
  - Gait disturbance [None]
  - Vision blurred [None]
  - Malaise [None]
  - Dry mouth [None]
  - Nausea [None]
  - Pyrexia [None]
  - Chills [None]
  - Insomnia [None]
  - Paraesthesia [None]
  - Abdominal pain upper [None]
  - Headache [None]
  - Dizziness [None]
  - Fatigue [None]
  - Influenza like illness [None]
  - Blood pressure increased [None]
  - Pain [None]
  - Somnolence [None]
  - Weight decreased [None]
  - Drug interaction [None]
  - Intentional drug misuse [None]
